FAERS Safety Report 5347100-X (Version None)
Quarter: 2007Q2

REPORT INFORMATION
  Report Type: 
  Country: None (occurrence: None)
  Receive Date: 20070604
  Receipt Date: 20070523
  Transmission Date: 20071010
  Serious: Yes (Hospitalization)
  Sender: FDA-Public Use
  Company Number: 2007VX001490

PATIENT
  Age: 63 Year
  Sex: Female

DRUGS (8)
  1. INFERGEN [Suspect]
     Indication: HEPATITIS C
     Dosage: 15 UG; QD; SC
     Route: 058
     Dates: start: 20061224, end: 20070502
  2. RIBAVIRIN [Concomitant]
  3. ACCOLATE [Concomitant]
  4. NEURONTIN [Concomitant]
  5. PREMARIN [Concomitant]
  6. PROZAC [Concomitant]
  7. KLONOPIN [Concomitant]
  8. LASIX [Concomitant]

REACTIONS (4)
  - EPISTAXIS [None]
  - GASTRIC HAEMORRHAGE [None]
  - MOUTH HAEMORRHAGE [None]
  - PLATELET COUNT DECREASED [None]
